FAERS Safety Report 8127639-4 (Version None)
Quarter: 2012Q1

REPORT INFORMATION
  Report Type: 
  Country: None (occurrence: None)
  Receive Date: 20120210
  Receipt Date: 20120130
  Transmission Date: 20120608
  Serious: Yes (Hospitalization)
  Sender: FDA-Public Use
  Company Number: US-NOVOPROD-339175

PATIENT
  Age: 55 Year
  Sex: Male
  Weight: 78.458 kg

DRUGS (2)
  1. ONGLYZA [Suspect]
     Indication: PRODUCT USED FOR UNKNOWN INDICATION
     Dosage: UNKNOWN
     Route: 048
  2. VICTOZA [Suspect]
     Dosage: NOT A SUSPECT PRODUCT
     Route: 058

REACTIONS (1)
  - PANCREATITIS [None]
